FAERS Safety Report 8476521-1 (Version None)
Quarter: 2012Q2

REPORT INFORMATION
  Report Type: 
  Country: None (occurrence: None)
  Receive Date: 20120628
  Receipt Date: 20120621
  Transmission Date: 20120825
  Serious: Yes (Hospitalization)
  Sender: FDA-Public Use
  Company Number: NL-B.I. PHARMACEUTICALS,INC./RIDGEFIELD-2012-NL-00262NL

PATIENT
  Sex: Male

DRUGS (2)
  1. ACE-INHIBITOR [Concomitant]
     Dates: start: 20120301
  2. VIRAMUNE RETARD [Suspect]
     Dates: start: 20120620, end: 20120621

REACTIONS (3)
  - SWOLLEN TONGUE [None]
  - ANGIOEDEMA [None]
  - DYSPNOEA [None]
